FAERS Safety Report 21376965 (Version 1)
Quarter: 2022Q3

REPORT INFORMATION
  Report Type: Spontaneous
  Country: CN (occurrence: CN)
  Receive Date: 20220926
  Receipt Date: 20220926
  Transmission Date: 20221027
  Serious: Yes (Other)
  Sender: FDA-Public Use
  Company Number: CN-PFIZER INC-PV202200069131

PATIENT
  Age: 25 Year
  Sex: Female
  Weight: 60 kg

DRUGS (1)
  1. HEMABATE [Suspect]
     Active Substance: CARBOPROST TROMETHAMINE
     Indication: Postpartum haemorrhage
     Dosage: 250 UG, 1X/DAY
     Route: 030
     Dates: start: 20220829, end: 20220829

REACTIONS (3)
  - Vomiting [Recovering/Resolving]
  - Diarrhoea [Recovering/Resolving]
  - Abdominal pain lower [Recovering/Resolving]

NARRATIVE: CASE EVENT DATE: 20220829
